FAERS Safety Report 8324405-1 (Version None)
Quarter: 2012Q2

REPORT INFORMATION
  Report Type: 
  Country: None (occurrence: None)
  Receive Date: 20120430
  Receipt Date: 20120430
  Transmission Date: 20120825
  Serious: Yes (Hospitalization)
  Sender: FDA-Public Use
  Company Number: None

PATIENT
  Age: 60 Year
  Sex: Female
  Weight: 67.3 kg

DRUGS (6)
  1. ZITHROMAX [Concomitant]
  2. ACYCLOVIR [Concomitant]
  3. DOXYCYCLINE [Concomitant]
  4. TEMSIROLIMUS [Suspect]
  5. VELCADE [Suspect]
  6. PREMPRO [Concomitant]

REACTIONS (4)
  - DYSPNOEA [None]
  - DIARRHOEA [None]
  - CARDIAC FAILURE CONGESTIVE [None]
  - GASTROENTERITIS VIRAL [None]
